FAERS Safety Report 9094707 (Version 1)
Quarter: 2013Q1

REPORT INFORMATION
  Report Type: Spontaneous
  Country: US (occurrence: US)
  Receive Date: 20130220
  Receipt Date: 20130220
  Transmission Date: 20140127
  Serious: No
  Sender: FDA-Public Use
  Company Number: US-BIOGENIDEC-2013BI012640

PATIENT
  Sex: Female

DRUGS (1)
  1. TYSABRI [Suspect]
     Indication: MULTIPLE SCLEROSIS
     Route: 042
     Dates: start: 20120411

REACTIONS (19)
  - Joint injury [Unknown]
  - Pain [Unknown]
  - Paraesthesia [Unknown]
  - Shoulder operation [Unknown]
  - Stress [Unknown]
  - Memory impairment [Unknown]
  - Musculoskeletal disorder [Unknown]
  - Speech disorder [Unknown]
  - Confusional state [Unknown]
  - Tremor [Unknown]
  - Intervertebral disc protrusion [Unknown]
  - Cognitive disorder [Unknown]
  - Fear [Unknown]
  - Insomnia [Unknown]
  - Depression [Unknown]
  - Multiple sclerosis [Unknown]
  - Fatigue [Unknown]
  - Headache [Unknown]
  - Asthenia [Unknown]
